FAERS Safety Report 9055380 (Version 8)
Quarter: 2016Q1

REPORT INFORMATION
  Report Type: Spontaneous
  Country: US (occurrence: US)
  Receive Date: 20130206
  Receipt Date: 20160225
  Transmission Date: 20160526
  Serious: Yes (Hospitalization, Other)
  Sender: FDA-Public Use
  Company Number: US-009507513-1302USA002144

PATIENT
  Sex: Male
  Weight: 92.97 kg

DRUGS (4)
  1. PROPECIA [Suspect]
     Active Substance: FINASTERIDE
     Indication: ANDROGENETIC ALOPECIA
     Dosage: 1 MG, UNK
     Route: 048
     Dates: start: 1999, end: 2003
  2. LOVAZA [Concomitant]
     Active Substance: OMEGA-3-ACID ETHYL ESTERS
     Indication: HYPERCHOLESTEROLAEMIA
     Dosage: UNK
     Route: 048
     Dates: start: 1990
  3. ATORVASTATIN CALCIUM. [Concomitant]
     Active Substance: ATORVASTATIN CALCIUM
     Indication: HYPERCHOLESTEROLAEMIA
     Dosage: UNK
     Dates: start: 1985
  4. PROPECIA [Suspect]
     Active Substance: FINASTERIDE
     Dosage: 1 MG, UNK
     Route: 048
     Dates: start: 2006, end: 2012

REACTIONS (39)
  - Prostate cancer stage II [Not Recovered/Not Resolved]
  - Cataract operation [Unknown]
  - Hypertension [Unknown]
  - Deep vein thrombosis [Not Recovered/Not Resolved]
  - Deep vein thrombosis [Unknown]
  - Mean cell haemoglobin concentration increased [Unknown]
  - Creatinine renal clearance decreased [Unknown]
  - Sexual dysfunction [Not Recovered/Not Resolved]
  - Cystitis radiation [Unknown]
  - Oedema peripheral [Unknown]
  - Peripheral venous disease [Unknown]
  - Epistaxis [Unknown]
  - Cancer surgery [Unknown]
  - Transurethral bladder resection [Unknown]
  - Bladder cancer [Not Recovered/Not Resolved]
  - Radiotherapy to prostate [Unknown]
  - Peripheral arterial occlusive disease [Unknown]
  - Hyperlipidaemia [Unknown]
  - Osteoarthritis [Unknown]
  - Deep vein thrombosis [Unknown]
  - Blood glucose increased [Unknown]
  - Erectile dysfunction [Not Recovered/Not Resolved]
  - Skin cancer [Unknown]
  - Urinary incontinence [Recovering/Resolving]
  - Coronary artery disease [Unknown]
  - Rhinitis allergic [Unknown]
  - Stent placement [Unknown]
  - Blood creatinine increased [Unknown]
  - Mean cell haemoglobin increased [Unknown]
  - Monocyte count increased [Unknown]
  - Bladder cancer recurrent [Unknown]
  - Sleep apnoea syndrome [Unknown]
  - Spinal column stenosis [Unknown]
  - Blood urea increased [Unknown]
  - Oedema peripheral [Not Recovered/Not Resolved]
  - Blood creatinine increased [Unknown]
  - Injury [Unknown]
  - Radical prostatectomy [Unknown]
  - Sexual dysfunction [Unknown]

NARRATIVE: CASE EVENT DATE: 1999
